FAERS Safety Report 20103851 (Version 1)
Quarter: 2021Q4

REPORT INFORMATION
  Report Type: Report from Study
  Country: ES (occurrence: ES)
  Receive Date: 20211123
  Receipt Date: 20211123
  Transmission Date: 20220303
  Serious: Yes (Other)
  Sender: FDA-Public Use
  Company Number: ES-JNJFOC-20210728737

PATIENT
  Sex: Female
  Weight: 60 kg

DRUGS (11)
  1. SILDENAFIL [Suspect]
     Active Substance: SILDENAFIL
     Indication: Pulmonary arterial hypertension
     Dosage: 120 MILLIGRAM, QD
     Route: 048
     Dates: start: 20210119, end: 20210428
  2. SILDENAFIL [Suspect]
     Active Substance: SILDENAFIL
     Dosage: 180 MILLIGRAM, QD
     Route: 048
     Dates: start: 20210429, end: 20210511
  3. SILDENAFIL [Suspect]
     Active Substance: SILDENAFIL
     Dosage: 120 MILLIGRAM, QD
     Route: 048
     Dates: start: 20210512
  4. MACITENTAN [Suspect]
     Active Substance: MACITENTAN
     Indication: Pulmonary arterial hypertension
     Dosage: 10 MILLIGRAM, QD
     Route: 048
     Dates: start: 20210511
  5. HYDROXYCHLOROQUINE [Concomitant]
     Active Substance: HYDROXYCHLOROQUINE
     Indication: Systemic lupus erythematosus
     Dosage: UNK
     Route: 048
     Dates: start: 20140522
  6. URSODIOL [Concomitant]
     Active Substance: URSODIOL
     Indication: Biliary cirrhosis
     Dosage: UNK
     Route: 048
     Dates: start: 20140922
  7. PILOCARPINE [Concomitant]
     Active Substance: PILOCARPINE
     Indication: Sjogren^s syndrome
     Dosage: UNK
     Route: 042
     Dates: start: 20131129
  8. LORAZEPAM [Concomitant]
     Active Substance: LORAZEPAM
     Indication: Insomnia
     Dosage: UNK
     Route: 048
     Dates: start: 20200817
  9. OMEPRAZOLE [Concomitant]
     Active Substance: OMEPRAZOLE
     Indication: Gastrointestinal disorder therapy
     Dosage: UNK
     Route: 048
     Dates: start: 20140522
  10. CALCIUM CARBONATE\CHOLECALCIFEROL [Concomitant]
     Active Substance: CALCIUM CARBONATE\CHOLECALCIFEROL
     Indication: Osteoporosis
     Dosage: UNK
     Route: 048
     Dates: start: 20200817
  11. IVABRADINE [Concomitant]
     Active Substance: IVABRADINE
     Indication: Palpitations
     Dosage: UNK
     Route: 048
     Dates: start: 20181112

REACTIONS (3)
  - Renal impairment [Unknown]
  - Pulmonary arterial hypertension [Unknown]
  - Hypotension [Unknown]

NARRATIVE: CASE EVENT DATE: 20210428
